FAERS Safety Report 9643946 (Version 2)
Quarter: 2013Q4

REPORT INFORMATION
  Report Type: Spontaneous
  Country: GB (occurrence: GB)
  Receive Date: 20131024
  Receipt Date: 20131029
  Transmission Date: 20140711
  Serious: Yes (Hospitalization)
  Sender: FDA-Public Use
  Company Number: GB-ACTAVIS-2013-19193

PATIENT
  Age: 65 Year
  Sex: Female

DRUGS (6)
  1. DOCETAXEL (UNKNOWN) [Suspect]
     Indication: BREAST CANCER
     Dosage: 124 MG, 1/ THREE WEEKS
     Route: 042
     Dates: start: 20130913
  2. DOCETAXEL (UNKNOWN) [Suspect]
     Dosage: 100 MG, 1/ THREE WEEKS
     Route: 042
     Dates: start: 20131003
  3. PERTUZUMAB [Concomitant]
     Indication: BREAST CANCER
     Dosage: 840 MG, 1/ THREE WEEKS; LAST DOSE PRIOR TO SAE 12-SEP-2013, AND 420 MG EVERY 3 WEEKS
     Route: 042
     Dates: start: 20130912
  4. TRASTUZUMAB [Concomitant]
     Indication: BREAST CANCER
     Dosage: 488 MG, 1/ THREE WEEKS LAST DOSE PRIOR TO SAE 12-SEP-2013
     Route: 042
     Dates: start: 20130912
  5. DEXAMETHASONE [Concomitant]
     Indication: PROPHYLAXIS
     Dosage: 16 MG, UNK
     Route: 065
     Dates: start: 20130912
  6. DOMPERIDONE [Concomitant]
     Indication: NAUSEA
     Dosage: 20-80 MG
     Route: 065
     Dates: start: 20130913

REACTIONS (1)
  - Neutropenic sepsis [Recovered/Resolved]
